FAERS Safety Report 21219182 (Version 1)
Quarter: 2022Q3

REPORT INFORMATION
  Report Type: Spontaneous
  Country: US (occurrence: US)
  Receive Date: 20220816
  Receipt Date: 20220816
  Transmission Date: 20221027
  Serious: Yes (Other)
  Sender: FDA-Public Use
  Company Number: US-BEH-2022148467

PATIENT
  Sex: Female

DRUGS (11)
  1. HIZENTRA [Suspect]
     Active Substance: HUMAN IMMUNOGLOBULIN G
     Indication: Immunodeficiency common variable
     Dosage: 8 GRAM, QW
     Route: 058
  2. CYCLOBENZAPRINE [Concomitant]
     Active Substance: CYCLOBENZAPRINE
     Dosage: 5 MILLIGRAM
  3. CYCLOBENZAPRINE [Concomitant]
     Active Substance: CYCLOBENZAPRINE
     Dosage: 10 MILLIGRAM
  4. FAMOTIDINE [Concomitant]
     Active Substance: FAMOTIDINE
  5. WELLBUTRIN [Concomitant]
     Active Substance: BUPROPION HYDROCHLORIDE
  6. CHANTIX [Concomitant]
     Active Substance: VARENICLINE TARTRATE
  7. IPRATROPIUM [Concomitant]
     Active Substance: IPRATROPIUM
  8. LOVASTATIN [Concomitant]
     Active Substance: LOVASTATIN
  9. METHADONE HYDROCHLORIDE [Concomitant]
     Active Substance: METHADONE HYDROCHLORIDE
  10. OXYCODONE HYDROCHLORIDE [Concomitant]
     Active Substance: OXYCODONE HYDROCHLORIDE
  11. PREDNISONE [Concomitant]
     Active Substance: PREDNISONE

REACTIONS (1)
  - Pneumonia legionella [Recovering/Resolving]
